FAERS Safety Report 17004152 (Version 1)
Quarter: 2019Q4

REPORT INFORMATION
  Report Type: Other
  Country: CA (occurrence: CA)
  Receive Date: 20191107
  Receipt Date: 20191107
  Transmission Date: 20200122
  Serious: Yes (Other)
  Sender: FDA-Public Use
  Company Number: CA-PFIZER INC-2019475642

PATIENT
  Age: 67 Year
  Sex: Male

DRUGS (2)
  1. DOCETAXEL. [Suspect]
     Active Substance: DOCETAXEL
     Indication: OROPHARYNGEAL SQUAMOUS CELL CARCINOMA
     Dosage: UNK, CYCLIC, SOLUTION INTRAVENOUS
  2. DOCETAXEL. [Suspect]
     Active Substance: DOCETAXEL
     Indication: OROPHARYNGEAL SQUAMOUS CELL CARCINOMA
     Dosage: UNK UNK, CYCLIC

REACTIONS (2)
  - Neoplasm progression [Recovering/Resolving]
  - Mass [Recovering/Resolving]
